FAERS Safety Report 21719832 (Version 2)
Quarter: 2022Q4

REPORT INFORMATION
  Report Type: Spontaneous
  Country: US (occurrence: US)
  Receive Date: 20221213
  Receipt Date: 20221223
  Transmission Date: 20230112
  Serious: No
  Sender: FDA-Public Use
  Company Number: US-UNITED THERAPEUTICS-UNT-2022-027760

PATIENT
  Sex: Female

DRUGS (8)
  1. ORENITRAM [Suspect]
     Active Substance: TREPROSTINIL
     Indication: Pulmonary arterial hypertension
     Dosage: UNK
     Route: 048
     Dates: start: 20220908
  2. ORENITRAM [Suspect]
     Active Substance: TREPROSTINIL
     Dosage: 5 MG IN THE MORNING AND AFTERNOON (1 TABLET OF 5 MG) AND 1.25 MG AT NIGHT (1 TABLET OF 1 MG AND 0.25
     Route: 048
     Dates: start: 2022, end: 2022
  3. ORENITRAM [Suspect]
     Active Substance: TREPROSTINIL
     Dosage: 5 MG (1 TABLET OF 5 MG) IN THE MORNING AND 2.5 MG (2 TABLETS OF 1 MG AND 2 TABLETS OF 0.25 MG) AT MI
     Route: 048
     Dates: start: 2022, end: 2022
  4. ORENITRAM [Suspect]
     Active Substance: TREPROSTINIL
     Dosage: 5 MG IN THE MORNING, 3 MG IN AFTERNOON AND 2.5 MG AT BEDTIME, TID
     Route: 048
     Dates: start: 2022
  5. ORENITRAM [Suspect]
     Active Substance: TREPROSTINIL
     Indication: Pulmonary arterial hypertension
     Dosage: UNK
     Route: 048
  6. ORENITRAM [Suspect]
     Active Substance: TREPROSTINIL
     Indication: Pulmonary arterial hypertension
     Dosage: UNK
     Route: 048
  7. ORENITRAM [Suspect]
     Active Substance: TREPROSTINIL
     Indication: Pulmonary arterial hypertension
     Dosage: UNK
     Route: 048
  8. MAXALT [Interacting]
     Active Substance: RIZATRIPTAN BENZOATE
     Indication: Migraine
     Dosage: UNK
     Route: 060
     Dates: start: 2022

REACTIONS (4)
  - Migraine [Recovered/Resolved]
  - Abdominal pain upper [Unknown]
  - Vomiting [Unknown]
  - Drug interaction [Unknown]

NARRATIVE: CASE EVENT DATE: 20220101
